FAERS Safety Report 9292607 (Version 1)
Quarter: 2013Q2

REPORT INFORMATION
  Report Type: Spontaneous
  Country: US (occurrence: None)
  Receive Date: 20130515
  Receipt Date: 20130515
  Transmission Date: 20140414
  Serious: No
  Sender: FDA-Public Use
  Company Number: None

PATIENT
  Age: 64 Year
  Sex: Female

DRUGS (1)
  1. OXALIPLATIN [Suspect]
     Dosage: 139 DAYS (INTERMITTENT DOSING)
     Dates: start: 20060705, end: 20061121

REACTIONS (6)
  - Portal hypertension [None]
  - Neuropathy peripheral [None]
  - Splenomegaly [None]
  - Hepatic cirrhosis [None]
  - Faeces discoloured [None]
  - Platelet count decreased [None]
